FAERS Safety Report 16173682 (Version 1)
Quarter: 2019Q2

REPORT INFORMATION
  Report Type: Spontaneous
  Country: US (occurrence: US)
  Receive Date: 20190408
  Receipt Date: 20190408
  Transmission Date: 20190711
  Serious: Yes (Hospitalization)
  Sender: FDA-Public Use
  Company Number: None

PATIENT

DRUGS (1)
  1. NEULASTA [Suspect]
     Active Substance: PEGFILGRASTIM
     Indication: DRUG THERAPY
     Dosage: ?          OTHER FREQUENCY:Q 21 DAYS;?
     Route: 058
     Dates: start: 20190123

REACTIONS (2)
  - Irritable bowel syndrome [None]
  - Therapy cessation [None]
